FAERS Safety Report 16720887 (Version 2)
Quarter: 2019Q3

REPORT INFORMATION
  Report Type: Spontaneous
  Country: ZA (occurrence: ZA)
  Receive Date: 20190820
  Receipt Date: 20190909
  Transmission Date: 20191005
  Serious: Yes (Hospitalization, Other)
  Sender: FDA-Public Use
  Company Number: ZA-BRACCO-2019ZA04106

PATIENT
  Age: 64 Year
  Sex: Female

DRUGS (2)
  1. SALINE                             /00075401/ [Concomitant]
     Active Substance: SODIUM CHLORIDE
     Dosage: 30 ML
     Dates: start: 20190811, end: 20190811
  2. MULTIHANCE [Suspect]
     Active Substance: GADOBENATE DIMEGLUMINE
     Indication: NUCLEAR MAGNETIC RESONANCE IMAGING BREAST
     Dosage: 20 ML AT A RATE OF 2 ML/SEC, SINGLE
     Route: 042
     Dates: start: 20190811, end: 20190811

REACTIONS (3)
  - Nausea [Recovered/Resolved]
  - Syncope [Recovered/Resolved]
  - Vomiting [Recovered/Resolved]

NARRATIVE: CASE EVENT DATE: 20190811
